FAERS Safety Report 14133451 (Version 3)
Quarter: 2017Q4

REPORT INFORMATION
  Report Type: Spontaneous
  Country: US (occurrence: US)
  Receive Date: 20171026
  Receipt Date: 20171107
  Transmission Date: 20180321
  Serious: No
  Sender: FDA-Public Use
  Company Number: US-PFIZER INC-2017460793

PATIENT
  Age: 10 Year
  Sex: Male
  Weight: 36.29 kg

DRUGS (1)
  1. QUILLIVANT XR [Suspect]
     Active Substance: METHYLPHENIDATE HYDROCHLORIDE
     Indication: ATTENTION DEFICIT/HYPERACTIVITY DISORDER
     Dosage: 3 ML ONCE A DAY IN THE MORNING
     Route: 048
     Dates: start: 201609, end: 20171019

REACTIONS (2)
  - Weight increased [Unknown]
  - Drug effect incomplete [Unknown]
